FAERS Safety Report 17007543 (Version 2)
Quarter: 2020Q1

REPORT INFORMATION
  Report Type: Spontaneous
  Country: BR (occurrence: BR)
  Receive Date: 20191108
  Receipt Date: 20200104
  Transmission Date: 20200409
  Serious: Yes (Death, Hospitalization, Other)
  Sender: FDA-Public Use
  Company Number: BR-AMGEN-BRASP2019184735

PATIENT
  Age: 80 Year
  Sex: Female

DRUGS (1)
  1. ENBREL [Suspect]
     Active Substance: ETANERCEPT
     Indication: PRODUCT USED FOR UNKNOWN INDICATION
     Dosage: UNK
     Route: 065
     Dates: start: 2011, end: 2018

REACTIONS (4)
  - Cerebrovascular accident [Fatal]
  - Infection [Unknown]
  - Respiratory failure [Fatal]
  - Dysphagia [Unknown]

NARRATIVE: CASE EVENT DATE: 201910
